FAERS Safety Report 22655068 (Version 1)
Quarter: 2023Q2

REPORT INFORMATION
  Report Type: Spontaneous
  Country: US (occurrence: None)
  Receive Date: 20230628
  Receipt Date: 20230628
  Transmission Date: 20230722
  Serious: Yes (Other)
  Sender: FDA-Public Use
  Company Number: None

PATIENT
  Age: 36 Year
  Sex: Female
  Weight: 89.4 kg

DRUGS (6)
  1. INFED [Suspect]
     Active Substance: IRON DEXTRAN
     Indication: Iron deficiency anaemia
     Dosage: OTHER FREQUENCY : ONCE;?
     Route: 042
     Dates: start: 20230601, end: 20230601
  2. Adderall 20 mg PO BID [Concomitant]
  3. Duloxetine 20 mg PO daily [Concomitant]
  4. Nortriptyline 10 mg PO daily [Concomitant]
  5. Zyrtec 10 mg PO daily [Concomitant]
  6. Fluticasone 50 mcg 1 spray into both nostrils BID [Concomitant]

REACTIONS (7)
  - Dizziness [None]
  - Feeling hot [None]
  - Paraesthesia [None]
  - Blood pressure increased [None]
  - Dyspepsia [None]
  - Hyperhidrosis [None]
  - Chest pain [None]

NARRATIVE: CASE EVENT DATE: 20230601
